FAERS Safety Report 10403292 (Version 2)
Quarter: 2014Q3

REPORT INFORMATION
  Report Type: Spontaneous
  Country: US (occurrence: US)
  Receive Date: 20140822
  Receipt Date: 20140822
  Transmission Date: 20150326
  Serious: Yes (Other)
  Sender: FDA-Public Use
  Company Number: PHHY2014US102815

PATIENT
  Age: 67 Year
  Sex: Male

DRUGS (7)
  1. HYDROCODONE [Suspect]
     Active Substance: HYDROCODONE
     Dosage: UNK UKN, UNK
     Route: 048
  2. OXYBUTYNIN [Suspect]
     Active Substance: OXYBUTYNIN
     Dosage: UNK UKN, UNK
     Route: 048
  3. PAROXETINE [Suspect]
     Active Substance: PAROXETINE\PAROXETINE HYDROCHLORIDE
     Dosage: UNK UKN, UNK
     Route: 048
  4. LIORESAL [Suspect]
     Active Substance: BACLOFEN
     Indication: MUSCLE SPASTICITY
     Dosage: 100 MCG/ DAY
     Route: 037
     Dates: start: 20081009
  5. ZONISAMIDE. [Suspect]
     Active Substance: ZONISAMIDE
     Dosage: UNK UKN, UNK
     Route: 048
  6. FENTANYL. [Suspect]
     Active Substance: FENTANYL
     Dosage: 10 MCG/DAY
     Route: 037
     Dates: start: 20081009
  7. FLEXERIL [Suspect]
     Active Substance: CYCLOBENZAPRINE HYDROCHLORIDE
     Dosage: UNK UKN, UNK
     Route: 048

REACTIONS (4)
  - Pain [Recovered/Resolved]
  - Cerebrospinal fluid leakage [Recovered/Resolved]
  - Unevaluable event [Recovered/Resolved]
  - Muscle spasticity [Recovered/Resolved]

NARRATIVE: CASE EVENT DATE: 20140508
